FAERS Safety Report 13924182 (Version 1)
Quarter: 2017Q3

REPORT INFORMATION
  Report Type: Spontaneous
  Country: CA (occurrence: CA)
  Receive Date: 20170831
  Receipt Date: 20170831
  Transmission Date: 20171127
  Serious: Yes (Other)
  Sender: FDA-Public Use
  Company Number: CA-TEVA-802158ACC

PATIENT
  Age: 57 Year
  Sex: Female

DRUGS (10)
  1. DOCUSATE SODIUM. [Concomitant]
     Active Substance: DOCUSATE SODIUM
  2. TOLTERODINE [Concomitant]
     Active Substance: TOLTERODINE
  3. GD-AMLODIPINE/ATORVASTATIN [Concomitant]
  4. DOMPERIDONE [Concomitant]
     Active Substance: DOMPERIDONE
  5. RATIO-METFORMIN [Suspect]
     Active Substance: METFORMIN HYDROCHLORIDE
     Indication: DIABETES MELLITUS
  6. FUROSEMIDE. [Concomitant]
     Active Substance: FUROSEMIDE
  7. ATENOLOL TABLETS, BP [Concomitant]
     Active Substance: ATENOLOL
  8. FENOFIBRATE. [Concomitant]
     Active Substance: FENOFIBRATE
  9. RAMIPRIL. [Concomitant]
     Active Substance: RAMIPRIL
  10. LANSOPRAZOLE. [Concomitant]
     Active Substance: LANSOPRAZOLE

REACTIONS (1)
  - Gastrointestinal haemorrhage [Unknown]
